FAERS Safety Report 8851716 (Version 1)
Quarter: 2012Q4

REPORT INFORMATION
  Report Type: Spontaneous
  Country: US (occurrence: None)
  Receive Date: 20121018
  Receipt Date: 20121018
  Transmission Date: 20130627
  Serious: Yes (Other)
  Sender: FDA-Public Use
  Company Number: None

PATIENT
  Age: 42 Year
  Sex: Male
  Weight: 77.11 kg

DRUGS (2)
  1. CIALIS [Suspect]
     Indication: SEXUAL DISORDER NOS
     Dosage: 1 5mg pill as required po
     Route: 048
     Dates: start: 201204, end: 201210
  2. CIALIS [Suspect]
     Indication: DRUG THERAPY ENHANCEMENT
     Dosage: 1 5mg pill as required po
     Route: 048
     Dates: start: 201204, end: 201210

REACTIONS (5)
  - Emotional disorder [None]
  - Crying [None]
  - Anger [None]
  - Aggression [None]
  - Anger [None]
